FAERS Safety Report 8979514 (Version 1)
Quarter: 2012Q4

REPORT INFORMATION
  Report Type: 
  Country: US (occurrence: US)
  Receive Date: 20121221
  Receipt Date: 20121221
  Transmission Date: 20130627
  Serious: No
  Sender: FDA-Public Use
  Company Number: US-JHP PHARMACEUTICALS, LLC-JHP201100569

PATIENT
  Age: 51 Year
  Sex: Female

DRUGS (3)
  1. APLISOL DIAGNOSTIC ANTIGEN [Suspect]
     Indication: TUBERCULIN TEST
     Dosage: 0.1 ml, single
     Route: 023
     Dates: start: 20111102, end: 20111102
  2. ARMOUR THYROID [Concomitant]
     Dosage: 30 mg, UNK
  3. SIMVASTAT [Concomitant]
     Dosage: 10 mg, UNK

REACTIONS (1)
  - Injection site reaction [Recovering/Resolving]
